FAERS Safety Report 16572663 (Version 1)
Quarter: 2019Q3

REPORT INFORMATION
  Report Type: Spontaneous
  Country: US (occurrence: US)
  Receive Date: 20190715
  Receipt Date: 20190715
  Transmission Date: 20191004
  Serious: No
  Sender: FDA-Public Use
  Company Number: US-SA-2019SA185689

PATIENT
  Age: 66 Year
  Sex: Male

DRUGS (1)
  1. LANTUS SOLOSTAR [Suspect]
     Active Substance: INSULIN GLARGINE
     Indication: BLOOD GLUCOSE
     Dosage: IF HIS BLOOD SUGAR IS ABOVE 200 THEN HE TAKES 40 UNITS BUT IF ITS BELOW 120 HE DOESNT TAKE ANY LANTU
     Route: 065

REACTIONS (2)
  - Product use complaint [Unknown]
  - Multiple use of single-use product [Unknown]
